FAERS Safety Report 21212845 (Version 8)
Quarter: 2022Q4

REPORT INFORMATION
  Report Type: Spontaneous
  Country: US (occurrence: US)
  Receive Date: 20220815
  Receipt Date: 20221027
  Transmission Date: 20230112
  Serious: No
  Sender: FDA-Public Use
  Company Number: US-JNJFOC-20220826526

PATIENT
  Sex: Male

DRUGS (8)
  1. UPTRAVI [Suspect]
     Active Substance: SELEXIPAG
     Indication: Product used for unknown indication
     Route: 048
  2. UPTRAVI [Suspect]
     Active Substance: SELEXIPAG
     Route: 048
  3. UPTRAVI [Suspect]
     Active Substance: SELEXIPAG
     Route: 048
  4. UPTRAVI [Suspect]
     Active Substance: SELEXIPAG
     Route: 048
     Dates: start: 20220926
  5. AMBRISENTAN [Suspect]
     Active Substance: AMBRISENTAN
     Indication: Pulmonary arterial hypertension
     Route: 048
     Dates: start: 20210610
  6. TYVASO [Suspect]
     Active Substance: TREPROSTINIL
     Indication: Product used for unknown indication
     Dosage: 11 BREATHS
     Route: 065
     Dates: start: 20220826
  7. SILDENAFIL [Suspect]
     Active Substance: SILDENAFIL
     Indication: Product used for unknown indication
     Route: 065
  8. TOPROL XL [Concomitant]
     Active Substance: METOPROLOL SUCCINATE

REACTIONS (14)
  - Muscle spasms [Unknown]
  - Diarrhoea [Recovering/Resolving]
  - Nausea [Recovered/Resolved]
  - Headache [Recovering/Resolving]
  - Decreased appetite [Recovering/Resolving]
  - Pain in extremity [Recovering/Resolving]
  - Pain in extremity [Recovering/Resolving]
  - Hypotension [Unknown]
  - Weight decreased [Not Recovered/Not Resolved]
  - Heart rate increased [Not Recovered/Not Resolved]
  - Cough [Unknown]
  - Pain in jaw [Not Recovered/Not Resolved]
  - Limb discomfort [Unknown]
  - Flushing [Unknown]
